FAERS Safety Report 8343253-X (Version None)
Quarter: 2012Q2

REPORT INFORMATION
  Report Type: 
  Country: None (occurrence: None)
  Receive Date: 20120503
  Receipt Date: 20120430
  Transmission Date: 20120825
  Serious: Yes (Death)
  Sender: FDA-Public Use
  Company Number: 2012SP022866

PATIENT
  Sex: Female

DRUGS (1)
  1. TEMODAR [Suspect]

REACTIONS (1)
  - DEATH [None]
